FAERS Safety Report 5185257-4 (Version None)
Quarter: 2006Q4

REPORT INFORMATION
  Report Type: 
  Country: None (occurrence: None)
  Receive Date: 20061220
  Receipt Date: 20060628
  Transmission Date: 20070319
  Serious: No
  Sender: FDA-Public Use
  Company Number: US-GLAXOSMITHKLINE-A0610603A

PATIENT

DRUGS (1)
  1. NICODERM CQ [Suspect]
     Dates: start: 20060627

REACTIONS (1)
  - APPLICATION SITE ERYTHEMA [None]
